FAERS Safety Report 8402881-3 (Version None)
Quarter: 2012Q2

REPORT INFORMATION
  Report Type: 
  Country: None (occurrence: None)
  Receive Date: 20120601
  Receipt Date: 20120524
  Transmission Date: 20120825
  Serious: Yes (Death, Hospitalization)
  Sender: FDA-Public Use
  Company Number: US-GLAXOSMITHKLINE-A0886754A

PATIENT
  Age: 59 Year
  Sex: Male
  Weight: 76.4 kg

DRUGS (3)
  1. GLUCOPHAGE [Concomitant]
  2. GLUCOTROL XL [Concomitant]
  3. AVANDIA [Suspect]
     Indication: TYPE 2 DIABETES MELLITUS
     Route: 048
     Dates: start: 20000201, end: 20071101

REACTIONS (7)
  - VENTRICULAR TACHYCARDIA [None]
  - VENTRICULAR FIBRILLATION [None]
  - ARTERIOSCLEROSIS CORONARY ARTERY [None]
  - MYOCARDIAL INFARCTION [None]
  - CARDIO-RESPIRATORY ARREST [None]
  - HYPERLIPIDAEMIA [None]
  - HYPOXIC-ISCHAEMIC ENCEPHALOPATHY [None]
